FAERS Safety Report 16098469 (Version 1)
Quarter: 2019Q1

REPORT INFORMATION
  Report Type: Spontaneous
  Country: ES (occurrence: ES)
  Receive Date: 20190321
  Receipt Date: 20190321
  Transmission Date: 20190418
  Serious: Yes (Other)
  Sender: FDA-Public Use
  Company Number: ES-TEVA-2019-ES-1025927

PATIENT
  Age: 79 Year
  Sex: Male

DRUGS (1)
  1. PACLITAXEL TEVA 6 MG/ML CONCENTRADO PARA SOLUCION PARA PERFUSION EFG, [Suspect]
     Active Substance: PACLITAXEL
     Indication: LUNG NEOPLASM MALIGNANT
     Dosage: 175 MG/M2
     Route: 041
     Dates: start: 20190128, end: 20190218

REACTIONS (2)
  - Hypersensitivity [Recovered/Resolved]
  - Pain [Recovered/Resolved]

NARRATIVE: CASE EVENT DATE: 20190218
